FAERS Safety Report 7754601-3 (Version None)
Quarter: 2011Q3

REPORT INFORMATION
  Report Type: 
  Country: None (occurrence: None)
  Receive Date: 20110915
  Receipt Date: 20110901
  Transmission Date: 20111222
  Serious: Yes (Hospitalization)
  Sender: FDA-Public Use
  Company Number: DE-GENENTECH-324270

PATIENT
  Sex: Male

DRUGS (2)
  1. ACE-INHIBITOR [Concomitant]
     Indication: PRODUCT USED FOR UNKNOWN INDICATION
  2. LUCENTIS [Suspect]
     Indication: AGE-RELATED MACULAR DEGENERATION
     Dosage: UNK UNK, UNKNOWN
     Route: 031
     Dates: start: 20110701, end: 20110801

REACTIONS (3)
  - RENAL FAILURE ACUTE [None]
  - CARDIAC DISORDER [None]
  - HEPATIC VEIN DILATATION [None]
